FAERS Safety Report 13508468 (Version 2)
Quarter: 2017Q2

REPORT INFORMATION
  Report Type: Spontaneous
  Country: FR (occurrence: FR)
  Receive Date: 20170503
  Receipt Date: 20170508
  Transmission Date: 20170830
  Serious: Yes (Hospitalization, Other)
  Sender: FDA-Public Use
  Company Number: FR-SUN PHARMACEUTICAL INDUSTRIES LTD-2017R1-139485

PATIENT
  Sex: Male

DRUGS (1)
  1. LORAZEPAM. [Suspect]
     Active Substance: LORAZEPAM
     Indication: PRODUCT USED FOR UNKNOWN INDICATION
     Dosage: BETWEEN THE TWO OF THEM THE CHILDREN WOULD HAVE CONSUMED TWENTY-FOUR TABLETS
     Route: 065

REACTIONS (3)
  - Dyspnoea [Recovering/Resolving]
  - Accidental poisoning [Recovering/Resolving]
  - Altered state of consciousness [Recovering/Resolving]
